FAERS Safety Report 5927970-4 (Version None)
Quarter: 2008Q4

REPORT INFORMATION
  Report Type: 
  Country: None (occurrence: None)
  Receive Date: 20081023
  Receipt Date: 20081020
  Transmission Date: 20090506
  Serious: Yes (Other)
  Sender: FDA-Public Use
  Company Number: US-WYE-H06465708

PATIENT
  Sex: Female

DRUGS (1)
  1. TYGACIL [Suspect]
     Dosage: UNKNOWN
     Route: 042

REACTIONS (1)
  - DEAFNESS [None]
